FAERS Safety Report 7617482-4 (Version None)
Quarter: 2011Q3

REPORT INFORMATION
  Report Type: 
  Country: None (occurrence: None)
  Receive Date: 20110718
  Receipt Date: 20110714
  Transmission Date: 20111222
  Serious: No
  Sender: FDA-Public Use
  Company Number: US-PFIZER INC-2011160064

PATIENT
  Age: 45 Year
  Sex: Female
  Weight: 76.644 kg

DRUGS (3)
  1. VITAMIN D [Concomitant]
     Dosage: UNK
  2. VALIUM [Concomitant]
     Dosage: UNK
  3. LYRICA [Suspect]
     Indication: NEUROPATHY PERIPHERAL
     Dosage: 75 MG, 2X/DAY
     Route: 048
     Dates: start: 20110623, end: 20110714

REACTIONS (1)
  - OEDEMA PERIPHERAL [None]
